FAERS Safety Report 4644896-7 (Version None)
Quarter: 2005Q2

REPORT INFORMATION
  Report Type: 
  Country: None (occurrence: None)
  Receive Date: 20050422
  Receipt Date: 20050411
  Transmission Date: 20051028
  Serious: No
  Sender: FDA-Public Use
  Company Number: 500292019/AKO4774AE/PC

PATIENT
  Sex: Male

DRUGS (1)
  1. BALANCED SALT SOLUTION [Suspect]
     Dosage: TOPICAL
     Route: 061

REACTIONS (2)
  - KERATITIS [None]
  - PHARMACEUTICAL PRODUCT COMPLAINT [None]
